FAERS Safety Report 5109365-9 (Version None)
Quarter: 2006Q3

REPORT INFORMATION
  Report Type: 
  Country: None (occurrence: None)
  Receive Date: 20060920
  Receipt Date: 20060912
  Transmission Date: 20061208
  Serious: Yes (Death, Other)
  Sender: FDA-Public Use
  Company Number: PHHO2006FR15241

PATIENT
  Age: 35 Year
  Sex: Male
  Weight: 70 kg

DRUGS (5)
  1. IMATINIB [Suspect]
     Indication: ACUTE LYMPHOCYTIC LEUKAEMIA
     Dosage: 800 MG, QD
     Route: 048
     Dates: start: 20060828, end: 20060910
  2. CYCLOPHOSPHAMIDE [Suspect]
     Indication: ACUTE LYMPHOCYTIC LEUKAEMIA
     Dosage: 550 MG, BID
     Route: 048
     Dates: start: 20060828, end: 20060830
  3. VINCRISTINE [Suspect]
     Indication: ACUTE LYMPHOCYTIC LEUKAEMIA
     Dosage: 2MG D4 AND D11
     Route: 042
     Dates: start: 20060831, end: 20060906
  4. ARA-C [Suspect]
     Indication: ACUTE LYMPHOCYTIC LEUKAEMIA
     Dosage: 40MG D1 D8 D15
     Route: 042
     Dates: start: 20060828, end: 20060910
  5. METHOTREXATE [Suspect]
     Indication: ACUTE LYMPHOCYTIC LEUKAEMIA
     Dosage: 15MGX3
     Dates: start: 20060828, end: 20060910

REACTIONS (5)
  - ABDOMINAL PAIN [None]
  - CARDIAC ARREST [None]
  - INTERSTITIAL LUNG DISEASE [None]
  - PERITONITIS [None]
  - PYREXIA [None]
